FAERS Safety Report 9778278 (Version 2)
Quarter: 2014Q1

REPORT INFORMATION
  Report Type: Report from Study
  Country: US (occurrence: US)
  Receive Date: 20131223
  Receipt Date: 20140109
  Transmission Date: 20141002
  Serious: Yes (Other)
  Sender: FDA-Public Use
  Company Number: US-JNJFOC-20131210460

PATIENT
  Age: 66 Year
  Sex: Female
  Weight: 45.59 kg

DRUGS (10)
  1. SIMPONI ARIA [Suspect]
     Indication: RHEUMATOID ARTHRITIS
     Route: 042
     Dates: start: 20131127
  2. LEFLUNOMIDE [Concomitant]
     Indication: RHEUMATOID ARTHRITIS
     Route: 048
  3. CARVEDILOL [Concomitant]
     Indication: CARDIAC DISORDER
     Route: 048
  4. FLAX SEED OIL [Concomitant]
     Indication: DRY EYE
     Route: 048
  5. VITAMIN C [Concomitant]
     Indication: GENERAL PHYSICAL CONDITION
     Route: 048
  6. MAGNESIUM [Concomitant]
     Indication: GENERAL PHYSICAL CONDITION
     Route: 048
  7. VITAMIN D [Concomitant]
     Indication: GENERAL PHYSICAL CONDITION
     Route: 048
  8. BIOTIN [Concomitant]
     Indication: NUTRITIONAL SUPPLEMENTATION
     Route: 048
     Dates: start: 2012
  9. METHOTREXATE [Concomitant]
     Indication: RHEUMATOID ARTHRITIS
     Dosage: 4 TABLETS
     Route: 048
     Dates: end: 2013
  10. HYDROXYCHLOROQUINE [Concomitant]
     Indication: RHEUMATOID ARTHRITIS
     Dosage: 4 TABLETS
     Route: 048
     Dates: start: 20131218

REACTIONS (5)
  - Respiratory tract infection [Recovering/Resolving]
  - Dry mouth [Not Recovered/Not Resolved]
  - Rash [Recovering/Resolving]
  - Skin exfoliation [Not Recovered/Not Resolved]
  - Scar [Not Recovered/Not Resolved]
